FAERS Safety Report 14410647 (Version 1)
Quarter: 2018Q1

REPORT INFORMATION
  Report Type: Spontaneous
  Country: US (occurrence: US)
  Receive Date: 20180119
  Receipt Date: 20180119
  Transmission Date: 20180509
  Serious: Yes (Hospitalization, Other)
  Sender: FDA-Public Use
  Company Number: US-COVIS PHARMA B.V.-2018COV00008

PATIENT
  Age: 73 Year
  Sex: Female
  Weight: 68.27 kg

DRUGS (8)
  1. OMEPRAZOLE MAGNESIUM. [Suspect]
     Active Substance: OMEPRAZOLE MAGNESIUM
     Indication: GASTROOESOPHAGEAL REFLUX DISEASE
     Dosage: 20 MG, 1X/DAY
     Route: 048
     Dates: start: 2013
  2. SYMBICORT [Suspect]
     Active Substance: BUDESONIDE\FORMOTEROL FUMARATE DIHYDRATE
     Indication: CHRONIC OBSTRUCTIVE PULMONARY DISEASE
     Dosage: 2 DOSAGE UNITS, 2X/DAY
     Route: 055
     Dates: start: 2009, end: 20171215
  3. BENAZEPRIL [Concomitant]
     Active Substance: BENAZEPRIL HYDROCHLORIDE
     Indication: HYPERTENSION
     Dosage: 10 MG, 1X/DAY
     Route: 048
     Dates: start: 2002
  4. BEVESPI AEROSPHERE [Suspect]
     Active Substance: FORMOTEROL FUMARATE\GLYCOPYRROLATE
     Indication: CHRONIC OBSTRUCTIVE PULMONARY DISEASE
     Dosage: 2 DOSAGE UNITS, 2X/DAY
     Route: 055
     Dates: start: 20171215
  5. AMLODIPINE [Concomitant]
     Active Substance: AMLODIPINE BESYLATE
     Indication: HYPERTENSION
     Dosage: 5 MG, 1X/DAY
     Route: 048
     Dates: start: 2002
  6. MEVACOR [Concomitant]
     Active Substance: LOVASTATIN
     Indication: BLOOD CHOLESTEROL INCREASED
     Dosage: 20 MG, 1X/DAY
     Route: 048
     Dates: start: 1973
  7. LEVOTHYROXINE. [Concomitant]
     Active Substance: LEVOTHYROXINE
     Indication: HYPOTHYROIDISM
     Dosage: 50 ?G, 1X/DAY
     Route: 048
     Dates: start: 2010
  8. ASPIRIN. [Concomitant]
     Active Substance: ASPIRIN
     Indication: COAGULATION TIME PROLONGED
     Dosage: 81 MG, 1X/DAY
     Route: 048
     Dates: start: 1992

REACTIONS (11)
  - Cough [Not Recovered/Not Resolved]
  - Overweight [Not Recovered/Not Resolved]
  - Urinary tract infection [Recovering/Resolving]
  - Peripheral swelling [Not Recovered/Not Resolved]
  - Colitis ischaemic [Recovered/Resolved]
  - Fluid retention [Not Recovered/Not Resolved]
  - Abdominal distension [Not Recovered/Not Resolved]
  - Obsessive thoughts [Unknown]
  - Product use issue [Recovered/Resolved]
  - Off label use [Recovered/Resolved]
  - Polyuria [Not Recovered/Not Resolved]

NARRATIVE: CASE EVENT DATE: 201604
